FAERS Safety Report 9247854 (Version 1)
Quarter: 2013Q2

REPORT INFORMATION
  Report Type: Spontaneous
  Country: BR (occurrence: BR)
  Receive Date: 20130423
  Receipt Date: 20130423
  Transmission Date: 20140414
  Serious: Yes (Hospitalization)
  Sender: FDA-Public Use
  Company Number: BR-SANOFI-AVENTIS-2013SA041192

PATIENT
  Age: 19 Year
  Sex: Female
  Weight: 71 kg

DRUGS (6)
  1. LANTUS SOLOSTAR [Suspect]
     Indication: LATENT AUTOIMMUNE DIABETES IN ADULTS
     Route: 058
     Dates: start: 2013
  2. SOLOSTAR [Suspect]
     Indication: DEVICE THERAPY
     Dates: start: 2013
  3. VENLAFAXINE [Concomitant]
     Indication: ANTIDEPRESSANT THERAPY
     Route: 048
  4. TORVAL [Concomitant]
     Indication: AFFECTIVE DISORDER
     Route: 048
  5. SEROQUEL [Concomitant]
     Route: 048
  6. HUMALOG [Concomitant]
     Indication: LATENT AUTOIMMUNE DIABETES IN ADULTS
     Dosage: BEFORE EACH MEAL
     Route: 058

REACTIONS (6)
  - Gastrointestinal infection [Unknown]
  - Abdominal pain [Unknown]
  - Diarrhoea [Unknown]
  - Vomiting [Unknown]
  - Hyperglycaemia [Unknown]
  - Fatigue [Unknown]
